FAERS Safety Report 9848324 (Version 1)
Quarter: 2014Q1

REPORT INFORMATION
  Report Type: Spontaneous
  Country: US (occurrence: None)
  Receive Date: 20140117
  Receipt Date: 20140117
  Transmission Date: 20141002
  Serious: Yes (Death)
  Sender: FDA-Public Use
  Company Number: B0958901A

PATIENT
  Age: 51 Year
  Sex: Female

DRUGS (5)
  1. MORPHINE [Suspect]
  2. DIAZEPAM (DIAZEPAM) [Suspect]
  3. DEXTROMETHORPHAN HBR [Suspect]
  4. PROMETHAZINE (PROMETHAZINE) [Suspect]
  5. PAROXETINE HYDROCHLORIDE [Suspect]

REACTIONS (1)
  - Drug abuse [None]
